FAERS Safety Report 24361690 (Version 4)
Quarter: 2024Q4

REPORT INFORMATION
  Report Type: Spontaneous
  Country: DE (occurrence: DE)
  Receive Date: 20240925
  Receipt Date: 20241001
  Transmission Date: 20250115
  Serious: No
  Sender: NOVARTIS
  Company Number: DE-PHOENIX-2024039718

PATIENT
  Age: 75 Year
  Sex: Female
  Weight: 60 kg

DRUGS (4)
  1. ZOMETA [Suspect]
     Active Substance: ZOLEDRONIC ACID
     Indication: Product used for unknown indication
     Dosage: UNK
     Route: 065
  2. AREDIA [Suspect]
     Active Substance: PAMIDRONATE DISODIUM
     Indication: Product used for unknown indication
     Dosage: UNK
     Route: 065
     Dates: start: 199904
  3. XELODA [Suspect]
     Active Substance: CAPECITABINE
     Indication: Breast cancer metastatic
     Dosage: DAILY DOSE: 1700 MG/M2 MILLIGRAM(S)/SQ. METER EVERY DAY
     Route: 048
     Dates: start: 200411
  4. IBANDRONATE SODIUM [Suspect]
     Active Substance: IBANDRONATE SODIUM
     Indication: Product used for unknown indication
     Dosage: 6 MG, 4W (DAILY DOSE: 6 MG MILLGRAM(S) EVERY 4 WEEK)
     Route: 065
     Dates: start: 200408, end: 20050524

REACTIONS (1)
  - Osteonecrosis of jaw [Recovered/Resolved]
